FAERS Safety Report 7226378-1 (Version None)
Quarter: 2011Q1

REPORT INFORMATION
  Report Type: 
  Country: None (occurrence: None)
  Receive Date: 20110114
  Receipt Date: 20110111
  Transmission Date: 20110831
  Serious: Yes (Death, Life-Threatening, Disabling)
  Sender: FDA-Public Use
  Company Number: PHHY2010JP69293

PATIENT
  Sex: Female
  Weight: 53 kg

DRUGS (10)
  1. NOLVADEX [Concomitant]
     Indication: BREAST CANCER
     Dosage: 20 MG, UNK
     Route: 048
     Dates: start: 20080521, end: 20090429
  2. TOPOTECAN [Concomitant]
     Indication: BREAST CANCER
     Dosage: 160 MG, UNK
     Route: 041
     Dates: start: 20090227, end: 20090313
  3. ARIMIDEX [Concomitant]
     Indication: BREAST CANCER
     Dosage: 1 MG, UNK
     Route: 048
     Dates: start: 20090430, end: 20101018
  4. TAXOTERE [Concomitant]
     Indication: BREAST CANCER
     Dosage: 100 MG, UNK
     Route: 041
     Dates: start: 20091001, end: 20101001
  5. BETAMETHASONE [Concomitant]
     Indication: CANCER PAIN
     Dosage: 1 MG, UNK
     Route: 048
     Dates: start: 20100409, end: 20101015
  6. 5-FU [Concomitant]
     Indication: BREAST CANCER
     Dosage: 500 MG, UNK
     Route: 041
     Dates: start: 20080924, end: 20090206
  7. ZOMETA [Suspect]
     Indication: METASTASES TO BONE
     Dosage: 4 MG, UNK
     Route: 041
     Dates: start: 20090828, end: 20100806
  8. NAVELBINE [Concomitant]
     Indication: BREAST CANCER
     Dosage: 30 MG, UNK
     Route: 041
     Dates: start: 20080613, end: 20080903
  9. FARMORUBICIN [Concomitant]
     Indication: BREAST CANCER
     Dosage: 150 MG, UNK
     Route: 041
     Dates: start: 20080924, end: 20090206
  10. ENDOXAN [Concomitant]
     Indication: BREAST CANCER
     Dosage: 600 MG, UNK
     Route: 041
     Dates: start: 20080924, end: 20090206

REACTIONS (12)
  - METASTASES TO LIVER [None]
  - HEPATIC FAILURE [None]
  - GINGIVAL SWELLING [None]
  - ERYTHEMA [None]
  - NEOPLASM MALIGNANT [None]
  - LOCAL SWELLING [None]
  - ABSCESS JAW [None]
  - SWELLING [None]
  - ABSCESS DRAINAGE [None]
  - WOUND TREATMENT [None]
  - CANCER PAIN [None]
  - OSTEONECROSIS OF JAW [None]
